FAERS Safety Report 10008395 (Version 1)
Quarter: 2014Q1

REPORT INFORMATION
  Report Type: Spontaneous
  Country: JP (occurrence: JP)
  Receive Date: 20140313
  Receipt Date: 20140313
  Transmission Date: 20141002
  Serious: Yes (Other)
  Sender: FDA-Public Use
  Company Number: JP-MYLANLABS-2014S1005211

PATIENT
  Age: 19 Year
  Sex: Female

DRUGS (8)
  1. PREDNISOLONE [Suspect]
     Indication: IMMUNE THROMBOCYTOPENIC PURPURA
     Route: 048
  2. PREDNISOLONE [Suspect]
     Indication: IMMUNE THROMBOCYTOPENIC PURPURA
     Route: 048
  3. PREDNISOLONE [Suspect]
     Indication: IMMUNE THROMBOCYTOPENIC PURPURA
     Route: 048
  4. PREDNISOLONE [Suspect]
     Indication: IMMUNE THROMBOCYTOPENIC PURPURA
     Route: 048
  5. PREDNISOLONE [Suspect]
     Indication: IMMUNE THROMBOCYTOPENIC PURPURA
     Route: 048
  6. PREDNISOLONE [Suspect]
     Indication: IMMUNE THROMBOCYTOPENIC PURPURA
     Route: 048
  7. VINCRISTINE [Concomitant]
     Indication: IMMUNE THROMBOCYTOPENIC PURPURA
  8. GAMMA GLOBULIN [Concomitant]
     Indication: IMMUNE THROMBOCYTOPENIC PURPURA

REACTIONS (2)
  - Hepatic function abnormal [Unknown]
  - Myopathy [Unknown]
